FAERS Safety Report 4850444-9 (Version None)
Quarter: 2005Q4

REPORT INFORMATION
  Report Type: 
  Country: None (occurrence: None)
  Receive Date: 20051123
  Receipt Date: 20050909
  Transmission Date: 20060501
  Serious: No
  Sender: FDA-Public Use
  Company Number: TPA2005A01021

PATIENT
  Age: 75 Year
  Sex: Male
  Weight: 74.8435 kg

DRUGS (4)
  1. ROZEREM [Suspect]
     Indication: INSOMNIA
     Dosage: 8 MG, HS, PER ORAL
     Route: 048
     Dates: start: 20050830, end: 20050906
  2. SIMVASTATIN (SIMVASTATIN) (40 MILLIGRAM) [Concomitant]
  3. NIFEDIPINE (NIFEDIPINE) (60 MILLIGRAM) [Concomitant]
  4. CLONAZEPAM (CLONAZAPEM) (2 MILLIGRAM) [Concomitant]

REACTIONS (2)
  - DRUG INEFFECTIVE [None]
  - PAIN IN EXTREMITY [None]
